FAERS Safety Report 9157731 (Version 1)
Quarter: 2013Q1

REPORT INFORMATION
  Report Type: Spontaneous
  Country: US (occurrence: None)
  Receive Date: 20130311
  Receipt Date: 20130311
  Transmission Date: 20140127
  Serious: Yes (Disabling, Other)
  Sender: FDA-Public Use
  Company Number: None

PATIENT
  Age: 42 Year
  Sex: Female
  Weight: 56.7 kg

DRUGS (1)
  1. CLOMID [Suspect]
     Indication: INFERTILITY
     Route: 048
     Dates: start: 20100315, end: 20100519

REACTIONS (5)
  - Visual impairment [None]
  - Retinal disorder [None]
  - Visual impairment [None]
  - Photopsia [None]
  - Vitreous floaters [None]
